FAERS Safety Report 5710334-6 (Version None)
Quarter: 2008Q2

REPORT INFORMATION
  Report Type: 
  Country: None (occurrence: None)
  Receive Date: 20080418
  Receipt Date: 20080408
  Transmission Date: 20081010
  Serious: Yes (Other)
  Sender: FDA-Public Use
  Company Number: US-PFIZER INC-2008031437

PATIENT
  Sex: Female
  Weight: 70 kg

DRUGS (2)
  1. DILANTIN [Suspect]
     Indication: CONVULSION
  2. ATIVAN [Concomitant]

REACTIONS (5)
  - ANXIETY [None]
  - CONVULSION [None]
  - HYPERTENSION [None]
  - TINNITUS [None]
  - UNEVALUABLE EVENT [None]
